FAERS Safety Report 18469624 (Version 1)
Quarter: 2020Q4

REPORT INFORMATION
  Report Type: Report from Study
  Country: CA (occurrence: CA)
  Receive Date: 20201105
  Receipt Date: 20201105
  Transmission Date: 20210114
  Serious: Yes (Death)
  Sender: FDA-Public Use
  Company Number: CA-KARYOPHARM THERAPEUTICS, INC.-2020KPT001339

PATIENT
  Age: 62 Year
  Sex: Female

DRUGS (5)
  1. VELCADE [Concomitant]
     Active Substance: BORTEZOMIB
     Indication: PLASMA CELL MYELOMA
     Dosage: UNK
     Dates: start: 20200605
  2. VELCADE [Concomitant]
     Active Substance: BORTEZOMIB
     Indication: NEUROPATHY PERIPHERAL
  3. SELINEXOR [Suspect]
     Active Substance: SELINEXOR
     Indication: PLASMA CELL MYELOMA
     Dosage: UNK
     Dates: start: 20200605
  4. DECADRON [Concomitant]
     Active Substance: DEXAMETHASONE
     Indication: NEUROPATHY PERIPHERAL
  5. DECADRON [Concomitant]
     Active Substance: DEXAMETHASONE
     Indication: PLASMA CELL MYELOMA
     Dosage: UNK
     Dates: start: 20200605

REACTIONS (4)
  - Death [Fatal]
  - Haemorrhoidal haemorrhage [Unknown]
  - Therapy non-responder [Unknown]
  - Anaemia [Unknown]

NARRATIVE: CASE EVENT DATE: 20201025
